FAERS Safety Report 7650221-X (Version None)
Quarter: 2011Q3

REPORT INFORMATION
  Report Type: 
  Country: None (occurrence: None)
  Receive Date: 20110802
  Receipt Date: 20110725
  Transmission Date: 20111222
  Serious: Yes (Hospitalization)
  Sender: FDA-Public Use
  Company Number: US-ROCHE-788533

PATIENT
  Age: 65 Year
  Sex: Male
  Weight: 51 kg

DRUGS (14)
  1. FLOVENT [Concomitant]
     Dosage: DOSE: 2 PUFFS
  2. M.V.I. [Concomitant]
     Route: 048
  3. VIT B1 [Concomitant]
     Route: 048
  4. BEVACIZUMAB [Suspect]
     Dosage: ROUTE AND DOSE AS PER PROTOCOL, DOSE: 15 MG/KG ON DAYS 1 AND 22
     Route: 042
     Dates: start: 20110617
  5. CISPLATIN [Suspect]
     Dosage: ROUTE AS PER PROTOCOL, 50 MG/M2 ON DAYS 1,2 AND 22, 23.
     Route: 042
  6. DISPRIN [Concomitant]
     Route: 048
  7. LIPITOR [Concomitant]
     Route: 048
  8. COLREX [Concomitant]
     Route: 048
  9. CETUXIMAB [Suspect]
     Route: 042
     Dates: start: 20110714
  10. PREVEX HC [Concomitant]
     Dosage: 2 PUFFS
  11. PRECEDEX [Concomitant]
  12. TOPROL-XL [Concomitant]
     Route: 048
  13. CETUXIMAB [Suspect]
     Dosage: ROUTE AND DOSE AS PER PROTOCOL, 250 MG/M2 INTRAVENOUS WEEKLY X 7 INFUSIONS, WITH HELD
     Route: 042
     Dates: start: 20110617, end: 20110707
  14. CITRALITE [Concomitant]
     Route: 048

REACTIONS (1)
  - BLOOD CREATININE INCREASED [None]
